FAERS Safety Report 6020657-1 (Version None)
Quarter: 2008Q4

REPORT INFORMATION
  Report Type: 
  Country: None (occurrence: None)
  Receive Date: 20081224
  Receipt Date: 20081224
  Transmission Date: 20090506
  Serious: Yes (Life-Threatening, Disabling)
  Sender: FDA-Public Use
  Company Number: None

PATIENT
  Age: 59 Year
  Sex: Male
  Weight: 113.3993 kg

DRUGS (2)
  1. FLEBOGAMMA [Suspect]
     Indication: CHRONIC INFLAMMATORY DEMYELINATING POLYRADICULONEUROPATHY
     Dosage: 60 GRAM/DAY 28 DAYS
     Dates: start: 20081112
  2. FLEBOGAMMA [Suspect]
     Indication: CHRONIC INFLAMMATORY DEMYELINATING POLYRADICULONEUROPATHY
     Dosage: 60 GRAM/DAY 28 DAYS
     Dates: start: 20081113

REACTIONS (18)
  - ABASIA [None]
  - AMNESIA [None]
  - BACK PAIN [None]
  - CONFUSIONAL STATE [None]
  - COUGH [None]
  - DEPRESSION [None]
  - DIARRHOEA [None]
  - DYSARTHRIA [None]
  - DYSPHONIA [None]
  - HEART RATE ABNORMAL [None]
  - ILL-DEFINED DISORDER [None]
  - MALAISE [None]
  - MOBILITY DECREASED [None]
  - MUSCLE SPASMS [None]
  - MUSCULAR WEAKNESS [None]
  - PAIN [None]
  - SWELLING [None]
  - WALKING AID USER [None]
